FAERS Safety Report 4657177-2 (Version None)
Quarter: 2005Q2

REPORT INFORMATION
  Report Type: 
  Country: None (occurrence: None)
  Receive Date: 20050408
  Receipt Date: 20050210
  Transmission Date: 20051028
  Serious: No
  Sender: FDA-Public Use
  Company Number: 230522K05USA

PATIENT
  Age: 58 Year
  Sex: Female

DRUGS (6)
  1. REBIF [Suspect]
     Indication: MULTIPLE SCLEROSIS
     Dosage: 44 MCG, 3 IN 1 WEEKS, SUBCUTANEOUS
     Route: 058
     Dates: start: 20041112
  2. RITALIN [Concomitant]
  3. PAXIL [Concomitant]
  4. VITAMIN C (ASCORBIC ACID) [Concomitant]
  5. GINKGO BILOBA (GINKGO BILOBA) [Concomitant]
  6. VITAMIN E [Concomitant]

REACTIONS (8)
  - CYSTITIS [None]
  - FUNGAL SKIN INFECTION [None]
  - HAEMORRHOIDS [None]
  - INJECTION SITE ERYTHEMA [None]
  - INJECTION SITE HAEMORRHAGE [None]
  - INJECTION SITE PAIN [None]
  - INJECTION SITE REACTION [None]
  - IRRITABLE BOWEL SYNDROME [None]
